FAERS Safety Report 8164608-2 (Version None)
Quarter: 2012Q1

REPORT INFORMATION
  Report Type: 
  Country: None (occurrence: None)
  Receive Date: 20120227
  Receipt Date: 20120216
  Transmission Date: 20120608
  Serious: Yes (Hospitalization)
  Sender: FDA-Public Use
  Company Number: US-BRISTOL-MYERS SQUIBB COMPANY-16403602

PATIENT
  Age: 92 Year
  Sex: Female

DRUGS (9)
  1. SOLIRIS [Suspect]
     Indication: PAROXYSMAL NOCTURNAL HAEMOGLOBINURIA
     Dosage: 600MG: MAR10-ONG.900MG Q2W 2010-UNK CON FOR SOLN 10MG/ML
     Route: 042
     Dates: start: 20100101
  2. IRON [Concomitant]
  3. COUMADIN [Suspect]
     Indication: DEEP VEIN THROMBOSIS
     Dates: end: 20120101
  4. FERROUS SULFATE TAB [Concomitant]
  5. METFORMIN HCL [Concomitant]
  6. AMLODIPINE [Concomitant]
  7. LASIX [Concomitant]
  8. POTASSIUM CHLORIDE [Concomitant]
  9. FOLIC ACID [Concomitant]

REACTIONS (4)
  - HAEMORRHOIDS [None]
  - RECTAL HAEMORRHAGE [None]
  - DIVERTICULUM [None]
  - GASTRIC POLYPS [None]
